FAERS Safety Report 18623430 (Version 1)
Quarter: 2020Q4

REPORT INFORMATION
  Report Type: Spontaneous
  Country: GB (occurrence: GB)
  Receive Date: 20201216
  Receipt Date: 20201216
  Transmission Date: 20210114
  Serious: Yes (Other)
  Sender: FDA-Public Use
  Company Number: NVSC2020GB330454

PATIENT
  Age: 69 Year
  Sex: Female
  Weight: 52 kg

DRUGS (10)
  1. CITANEW [Concomitant]
     Active Substance: ESCITALOPRAM OXALATE
     Indication: PRODUCT USED FOR UNKNOWN INDICATION
     Dosage: 0.5 DF, QD (0.5+0+0+0) (HALF TABLET AFTER BREAKFAST)
     Route: 065
  2. ACLASTA [Suspect]
     Active Substance: ZOLEDRONIC ACID
     Indication: PRODUCT USED FOR UNKNOWN INDICATION
     Dosage: UNK
     Route: 065
     Dates: start: 201505
  3. FOLIC ACID. [Concomitant]
     Active Substance: FOLIC ACID
     Indication: PRODUCT USED FOR UNKNOWN INDICATION
     Dosage: 1 DF, QD, (1+0+0+0)
     Route: 065
  4. LEFORA [Concomitant]
     Indication: PRODUCT USED FOR UNKNOWN INDICATION
     Dosage: 1 DF, QD, (1+0+0+0) (1 TABLET IN THE MORNING)
     Route: 065
  5. H2F [Concomitant]
     Indication: PRODUCT USED FOR UNKNOWN INDICATION
     Dosage: 1 DF, QMO, (1+0+0+0) (BEFORE MEAL)
     Route: 065
  6. LEFLUNOMIDE. [Concomitant]
     Active Substance: LEFLUNOMIDE
     Indication: PRODUCT USED FOR UNKNOWN INDICATION
     Dosage: 10 MG, QD (ONE TABLET IN MORNING, 1+0+0+0)
     Route: 065
  7. ENBREL [Concomitant]
     Active Substance: ETANERCEPT
     Indication: PRODUCT USED FOR UNKNOWN INDICATION
     Dosage: UNK
     Route: 065
  8. MTX [Concomitant]
     Active Substance: METHOTREXATE SODIUM
     Indication: PRODUCT USED FOR UNKNOWN INDICATION
     Dosage: UNK
     Route: 065
  9. CA-C 1000 [Concomitant]
     Indication: PRODUCT USED FOR UNKNOWN INDICATION
     Dosage: 1 DF, QD (ALL FLA TAB 10) (1 X TABLETS, BEFORE MEAL)
     Route: 065
  10. SYSTANE (HYPROMELLOSE 2910 (4000 MPA.S)) [Concomitant]
     Active Substance: HYPROMELLOSE 2910 (4000 MPA.S)
     Indication: PRODUCT USED FOR UNKNOWN INDICATION
     Dosage: UNK, TID (2+2+2+0) (2 DROPS IN THE MORNING, 2 IN AFTERNOON, 2 IN EVENING)
     Route: 047

REACTIONS (8)
  - Furuncle [Unknown]
  - Osteoporosis [Unknown]
  - Depressed mood [Unknown]
  - Abscess [Unknown]
  - Sjogren^s syndrome [Unknown]
  - Weight decreased [Unknown]
  - Drug intolerance [Unknown]
  - Arthralgia [Unknown]

NARRATIVE: CASE EVENT DATE: 201505
